FAERS Safety Report 8857665 (Version 1)
Quarter: 2012Q4

REPORT INFORMATION
  Report Type: 
  Country: IT (occurrence: IT)
  Receive Date: 20121024
  Receipt Date: 20121024
  Transmission Date: 20130627
  Serious: Yes (Other)
  Sender: FDA-Public Use
  Company Number: IT-ABBOTT-12P-083-0999522-00

PATIENT
  Age: 67 Year
  Sex: Male

DRUGS (3)
  1. RYTHMOL [Suspect]
     Indication: ATRIAL FIBRILLATION
     Route: 048
     Dates: start: 20110601, end: 20120922
  2. RYTHMOL [Suspect]
     Route: 048
     Dates: start: 20120922, end: 20120922
  3. IBESARTAN/IDROCLOROTIAZONE [Concomitant]
     Indication: HYPERTENSION
     Route: 048

REACTIONS (3)
  - Bradycardia [Recovered/Resolved]
  - Hypotension [Recovered/Resolved]
  - Syncope [Recovered/Resolved]
